FAERS Safety Report 10076450 (Version 5)
Quarter: 2015Q1

REPORT INFORMATION
  Report Type: Report from Study
  Country: BE (occurrence: BE)
  Receive Date: 20140414
  Receipt Date: 20150303
  Transmission Date: 20150720
  Serious: Yes (Hospitalization)
  Sender: FDA-Public Use
  Company Number: BE-JNJFOC-20140108007

PATIENT
  Age: 79 Year
  Sex: Female

DRUGS (29)
  1. MAGNETOP (MAGNESIUM CITRATE) [Concomitant]
     Route: 065
     Dates: start: 201304, end: 201310
  2. OPTIMAX [Concomitant]
     Route: 065
     Dates: start: 20140115, end: 201403
  3. ALDACTONE [Concomitant]
     Active Substance: SPIRONOLACTONE
     Route: 065
     Dates: start: 201304, end: 20140312
  4. XARELTO [Suspect]
     Active Substance: RIVAROXABAN
     Indication: ATRIAL FIBRILLATION
     Route: 048
     Dates: start: 20130404, end: 20140404
  5. ESCITALOPRAM [Concomitant]
     Active Substance: ESCITALOPRAM OXALATE
     Route: 065
     Dates: start: 201004
  6. CALCIUM CARBONATE W/COLECALCIFEROL [Concomitant]
     Active Substance: CALCIUM CARBONATE\CHOLECALCIFEROL
     Route: 065
     Dates: start: 201209
  7. CORDARONE [Concomitant]
     Active Substance: AMIODARONE HYDROCHLORIDE
     Route: 065
     Dates: start: 201304
  8. XARELTO [Suspect]
     Active Substance: RIVAROXABAN
     Indication: ATRIAL FIBRILLATION
     Route: 048
     Dates: start: 20140404
  9. CRANBERRY EXTRACT [Concomitant]
     Route: 065
     Dates: start: 201209
  10. SPIRONOLACTONE. [Concomitant]
     Active Substance: SPIRONOLACTONE
     Route: 065
     Dates: start: 20140312
  11. PANTOPRAZOLE SODIUM [Concomitant]
     Active Substance: PANTOPRAZOLE SODIUM
     Route: 065
     Dates: start: 201004
  12. LEXOTAN [Concomitant]
     Active Substance: BROMAZEPAM
     Route: 065
     Dates: start: 20140115
  13. D-CURE [Concomitant]
     Route: 065
     Dates: start: 20140116
  14. NOBITEN [Concomitant]
     Route: 065
     Dates: start: 201403
  15. FASTUM [Concomitant]
     Active Substance: KETOPROFEN
     Route: 065
     Dates: start: 20140115, end: 20140305
  16. ALDACTONE [Concomitant]
     Active Substance: SPIRONOLACTONE
     Route: 065
     Dates: start: 20140312
  17. SPIRONOLACTONE. [Concomitant]
     Active Substance: SPIRONOLACTONE
     Route: 065
     Dates: start: 201303, end: 20140312
  18. XARELTO [Suspect]
     Active Substance: RIVAROXABAN
     Indication: CEREBROVASCULAR ACCIDENT PROPHYLAXIS
     Route: 048
     Dates: start: 20140404
  19. ASAFLOW [Concomitant]
     Active Substance: ASPIRIN
     Route: 065
     Dates: start: 201004, end: 201312
  20. BISOPROLOL [Concomitant]
     Active Substance: BISOPROLOL
     Route: 065
     Dates: start: 201004, end: 201309
  21. CLAMOXYL [Concomitant]
     Active Substance: AMOXICILLIN\CLAVULANIC ACID
     Route: 065
     Dates: start: 20140115, end: 20140120
  22. AMOXYCILLIN [Concomitant]
     Active Substance: AMOXICILLIN
     Route: 065
     Dates: start: 20140115, end: 20140120
  23. APROVEL [Concomitant]
     Active Substance: IRBESARTAN
     Route: 065
     Dates: start: 201209
  24. BROMAZEPAM [Concomitant]
     Active Substance: BROMAZEPAM
     Route: 065
     Dates: start: 201304, end: 201403
  25. NOBITEN [Concomitant]
     Route: 065
     Dates: start: 20140116
  26. SPIRONOLACTONE. [Concomitant]
     Active Substance: SPIRONOLACTONE
     Route: 065
     Dates: start: 201304, end: 20140312
  27. XARELTO [Suspect]
     Active Substance: RIVAROXABAN
     Indication: CEREBROVASCULAR ACCIDENT PROPHYLAXIS
     Route: 048
     Dates: start: 20130404, end: 20140404
  28. TASECTAN [Concomitant]
     Active Substance: GELATIN
     Route: 065
     Dates: start: 201403, end: 20140317
  29. BURINEX [Concomitant]
     Active Substance: BUMETANIDE
     Route: 065
     Dates: start: 201403

REACTIONS (15)
  - Hepatic function abnormal [Recovered/Resolved]
  - Cardiac failure [Recovered/Resolved]
  - Dry mouth [Recovering/Resolving]
  - Diarrhoea [Recovered/Resolved]
  - Pulmonary oedema [Recovered/Resolved]
  - Tendonitis [Recovering/Resolving]
  - Vitamin D deficiency [Recovering/Resolving]
  - General physical health deterioration [Recovered/Resolved]
  - Dyspraxia [Recovered/Resolved]
  - Cardiac failure congestive [Recovering/Resolving]
  - Hepatic function abnormal [Recovering/Resolving]
  - Hypertension [Recovering/Resolving]
  - Urinary tract infection [Recovering/Resolving]
  - Renal impairment [Recovered/Resolved]
  - Decreased appetite [Recovering/Resolving]

NARRATIVE: CASE EVENT DATE: 20140108
